FAERS Safety Report 13546410 (Version 1)
Quarter: 2017Q2

REPORT INFORMATION
  Report Type: Report from Study
  Country: US (occurrence: US)
  Receive Date: 20170515
  Receipt Date: 20170515
  Transmission Date: 20170830
  Serious: Yes (Death, Hospitalization)
  Sender: FDA-Public Use
  Company Number: US-BAYER-2017-018473

PATIENT
  Age: 80 Year
  Sex: Male

DRUGS (22)
  1. XOFIGO [Suspect]
     Active Substance: RADIUM RA-223 DICHLORIDE
     Indication: PROSTATE CANCER STAGE IV
     Dosage: 101.60 ?CI, ONCE
     Route: 042
     Dates: start: 20170105, end: 20170105
  2. ACIDOPHILUS [Concomitant]
     Active Substance: LACTOBACILLUS ACIDOPHILUS
  3. COQ10 [Concomitant]
     Active Substance: UBIDECARENONE
  4. LOVASTATIN. [Concomitant]
     Active Substance: LOVASTATIN
  5. LUPRON DEPOT [Concomitant]
     Active Substance: LEUPROLIDE ACETATE
  6. SELENIUM [Concomitant]
     Active Substance: SELENIUM
  7. HYDROCHLOROTHIAZIDE. [Concomitant]
     Active Substance: HYDROCHLOROTHIAZIDE
  8. LANTUS [Concomitant]
     Active Substance: INSULIN GLARGINE
  9. RAMIPRIL. [Concomitant]
     Active Substance: RAMIPRIL
  10. VITAMIN B12 [Concomitant]
     Active Substance: CYANOCOBALAMIN
  11. OXYBUTYNIN [Concomitant]
     Active Substance: OXYBUTYNIN
  12. DURAGESIC [Concomitant]
     Active Substance: FENTANYL
  13. METFORMIN [Concomitant]
     Active Substance: METFORMIN HYDROCHLORIDE
  14. MULTIVITAMIN [Concomitant]
     Active Substance: VITAMINS
  15. XOFIGO [Suspect]
     Active Substance: RADIUM RA-223 DICHLORIDE
     Indication: METASTASES TO BONE
  16. AMARYL [Concomitant]
     Active Substance: GLIMEPIRIDE
  17. FENTANYL. [Concomitant]
     Active Substance: FENTANYL
     Dosage: PATCH
     Route: 061
  18. ASPIRIN. [Concomitant]
     Active Substance: ASPIRIN
  19. FOLIC ACID. [Concomitant]
     Active Substance: FOLIC ACID
  20. OMEPRAZOLE. [Concomitant]
     Active Substance: OMEPRAZOLE
  21. VITAMIN C [Concomitant]
     Active Substance: ASCORBIC ACID
  22. XGEVA [Concomitant]
     Active Substance: DENOSUMAB

REACTIONS (13)
  - Death [Fatal]
  - Blood glucose increased [None]
  - Pancytopenia [None]
  - White blood cell count decreased [None]
  - Hypotension [None]
  - Blood bicarbonate increased [Recovered/Resolved]
  - Gait disturbance [None]
  - Acidosis [None]
  - Fatigue [None]
  - Dizziness [None]
  - Dehydration [None]
  - Haemoglobin decreased [None]
  - Platelet count decreased [None]
